FAERS Safety Report 15541439 (Version 1)
Quarter: 2018Q4

REPORT INFORMATION
  Report Type: Spontaneous
  Country: US (occurrence: US)
  Receive Date: 20181017
  Receipt Date: 20181017
  Transmission Date: 20190205
  Serious: Yes (Other)
  Sender: FDA-Public Use
  Company Number: None

PATIENT
  Sex: Male
  Weight: 102.06 kg

DRUGS (7)
  1. HYDROCODONE 10/ACETAMINOPHEN 325 [Suspect]
     Active Substance: ACETAMINOPHEN\HYDROCODONE
     Indication: BACK PAIN
     Dosage: ?          OTHER STRENGTH:10/325, 4 PILLS DA;QUANTITY:10/325 4 PILLS A ;?
  2. TEA TREE [Concomitant]
     Active Substance: GLYCERIN
  3. VITAMIN D3 [Concomitant]
     Active Substance: CHOLECALCIFEROL
  4. OMEPRAZOLE. [Concomitant]
     Active Substance: OMEPRAZOLE
  5. HYDROCODONE 10/ACETAMINOPHEN 325 [Suspect]
     Active Substance: ACETAMINOPHEN\HYDROCODONE
     Indication: NECK PAIN
     Dosage: ?          OTHER STRENGTH:10/325, 4 PILLS DA;QUANTITY:10/325 4 PILLS A ;?
  6. HYDROCODONE 10/ACETAMINOPHEN 325 [Suspect]
     Active Substance: ACETAMINOPHEN\HYDROCODONE
     Indication: ARTHRALGIA
     Dosage: ?          OTHER STRENGTH:10/325, 4 PILLS DA;QUANTITY:10/325 4 PILLS A ;?
  7. TESTOSTERONE. [Concomitant]
     Active Substance: TESTOSTERONE

REACTIONS (8)
  - Loss of consciousness [None]
  - Somnolence [None]
  - Abdominal pain upper [None]
  - Product substitution issue [None]
  - Feeling abnormal [None]
  - Fatigue [None]
  - Wrong technique in product usage process [None]
  - Dizziness [None]
